FAERS Safety Report 13208025 (Version 1)
Quarter: 2017Q1

REPORT INFORMATION
  Report Type: Spontaneous
  Country: GB (occurrence: GB)
  Receive Date: 20170209
  Receipt Date: 20170209
  Transmission Date: 20170428
  Serious: Yes (Other)
  Sender: FDA-Public Use
  Company Number: GB-MYLANLABS-2017M1007365

PATIENT

DRUGS (2)
  1. RISPERIDONE. [Suspect]
     Active Substance: RISPERIDONE
     Indication: ANXIETY
     Dosage: UNK
     Route: 048
     Dates: start: 20161230, end: 20161231
  2. LISINOPRIL. [Concomitant]
     Active Substance: LISINOPRIL
     Indication: BLOOD PRESSURE MEASUREMENT
     Dosage: 20 MG

REACTIONS (8)
  - Swollen tongue [Recovered/Resolved]
  - Erectile dysfunction [Unknown]
  - Lip swelling [Not Recovered/Not Resolved]
  - Photophobia [Unknown]
  - Wrong technique in product usage process [Unknown]
  - Visual acuity reduced [Unknown]
  - Poor quality sleep [Unknown]
  - Eye pain [Unknown]

NARRATIVE: CASE EVENT DATE: 20170104
